FAERS Safety Report 8075518-3 (Version None)
Quarter: 2012Q1

REPORT INFORMATION
  Report Type: 
  Country: None (occurrence: None)
  Receive Date: 20120127
  Receipt Date: 20120124
  Transmission Date: 20120608
  Serious: Yes (Hospitalization)
  Sender: FDA-Public Use
  Company Number: FR-SANOFI-AVENTIS-2012SA004948

PATIENT
  Age: 77 Year
  Sex: Female

DRUGS (8)
  1. BISOPROLOL FUMARATE [Suspect]
     Route: 048
     Dates: end: 20111123
  2. DIGOXIN [Suspect]
     Route: 048
     Dates: end: 20111123
  3. VALSARTAN [Suspect]
     Route: 048
  4. LEVOTHYROXINE SODIUM [Concomitant]
     Route: 048
  5. CORDARONE [Suspect]
     Route: 048
     Dates: end: 20111123
  6. LASIX [Suspect]
     Route: 048
  7. PREVISCAN [Concomitant]
     Route: 065
  8. FOLIC ACID [Concomitant]
     Route: 048

REACTIONS (3)
  - ELECTROCARDIOGRAM QT PROLONGED [None]
  - HYPOKALAEMIA [None]
  - BRADYCARDIA [None]
